FAERS Safety Report 19872975 (Version 1)
Quarter: 2021Q3

REPORT INFORMATION
  Report Type: Spontaneous
  Country: US (occurrence: US)
  Receive Date: 20210922
  Receipt Date: 20210922
  Transmission Date: 20211014
  Serious: No
  Sender: FDA-Public Use
  Company Number: US-ELI_LILLY_AND_COMPANY-US202109002955

PATIENT
  Age: 67 Year
  Sex: Female

DRUGS (2)
  1. LANTUS [Concomitant]
     Active Substance: INSULIN GLARGINE
     Indication: PRODUCT USED FOR UNKNOWN INDICATION
  2. TRULICITY [Suspect]
     Active Substance: DULAGLUTIDE
     Indication: DECREASED APPETITE
     Dosage: 0.75 MG, UNKNOWN
     Route: 058

REACTIONS (7)
  - Disturbance in attention [Recovered/Resolved]
  - Product dose omission issue [Unknown]
  - Feeling abnormal [Recovered/Resolved]
  - Fear of injection [Unknown]
  - Pain [Unknown]
  - Accidental underdose [Unknown]
  - Blood glucose increased [Unknown]

NARRATIVE: CASE EVENT DATE: 202108
